FAERS Safety Report 25021189 (Version 1)
Quarter: 2025Q1

REPORT INFORMATION
  Report Type: Spontaneous
  Country: US (occurrence: US)
  Receive Date: 20250228
  Receipt Date: 20250228
  Transmission Date: 20250409
  Serious: No
  Sender: BRISTOL-MYERS SQUIBB COMPANY
  Company Number: US-MLMSERVICE-20250219-PI414157-00323-4

PATIENT
  Age: 54 Year
  Sex: Female

DRUGS (4)
  1. TRIAMCINOLONE ACETONIDE [Suspect]
     Active Substance: TRIAMCINOLONE ACETONIDE
     Indication: Tendonitis
  2. TRIAMCINOLONE ACETONIDE [Suspect]
     Active Substance: TRIAMCINOLONE ACETONIDE
     Indication: Joint injury
  3. LIDOCAINE [Concomitant]
     Active Substance: LIDOCAINE
     Indication: Tendonitis
  4. LIDOCAINE [Concomitant]
     Active Substance: LIDOCAINE
     Indication: Joint injury

REACTIONS (5)
  - Skin atrophy [Unknown]
  - Purpura [Unknown]
  - Skin hypopigmentation [Unknown]
  - Off label use [Unknown]
  - Skin fragility [Unknown]
